FAERS Safety Report 11576297 (Version 1)
Quarter: 2015Q3

REPORT INFORMATION
  Report Type: Spontaneous
  Country: US (occurrence: None)
  Receive Date: 20150929
  Receipt Date: 20150929
  Transmission Date: 20151125
  Serious: No
  Sender: FDA-Public Use
  Company Number: None

PATIENT
  Age: 57 Year
  Sex: Male

DRUGS (6)
  1. VIEKIRA PAK [Suspect]
     Active Substance: DASABUVIR\OMBITASVIR\PARITAPREVIR\RITONAVIR
     Dosage: AS DIRECTED PO
     Route: 048
     Dates: start: 201506
  2. RIBAVIRIN 200MG KADMON [Suspect]
     Active Substance: RIBAVIRIN
     Indication: HEPATITIS
     Route: 048
     Dates: start: 201506
  3. BENADRYL [Concomitant]
     Active Substance: DIPHENHYDRAMINE HYDROCHLORIDE
  4. TEMAZEPAM. [Concomitant]
     Active Substance: TEMAZEPAM
  5. ATENOLOL. [Concomitant]
     Active Substance: ATENOLOL
  6. GENERLAC [Concomitant]
     Active Substance: LACTULOSE

REACTIONS (2)
  - Asthenia [None]
  - Anaemia [None]
